FAERS Safety Report 16151217 (Version 1)
Quarter: 2019Q2

REPORT INFORMATION
  Report Type: Spontaneous
  Country: US (occurrence: US)
  Receive Date: 20190402
  Receipt Date: 20190402
  Transmission Date: 20190711
  Serious: Yes (Hospitalization)
  Sender: FDA-Public Use
  Company Number: US-SUN PHARMACEUTICAL INDUSTRIES LTD-2018US-180773

PATIENT
  Age: 16 Month
  Sex: Female

DRUGS (1)
  1. OMEPRAZOLE. [Suspect]
     Active Substance: OMEPRAZOLE
     Indication: PRODUCT USED FOR UNKNOWN INDICATION
     Dosage: OMEPRAZOLE SUSPENSION 2 MG/ML, ESTIMATED TOTAL DOSE OF 140 MG
     Route: 048

REACTIONS (10)
  - Retching [Unknown]
  - Hypokalaemia [Recovered/Resolved]
  - Accidental overdose [Unknown]
  - Accidental exposure to product [Unknown]
  - Metabolic alkalosis [Recovered/Resolved]
  - Hypernatraemia [Recovered/Resolved]
  - Respiratory distress [Recovering/Resolving]
  - Electrocardiogram QT prolonged [Recovering/Resolving]
  - Aspiration [Recovering/Resolving]
  - Diarrhoea [Unknown]
